FAERS Safety Report 5414974-3 (Version None)
Quarter: 2007Q3

REPORT INFORMATION
  Report Type: 
  Country: None (occurrence: None)
  Receive Date: 20070814
  Receipt Date: 20070814
  Transmission Date: 20080115
  Serious: No
  Sender: FDA-Public Use
  Company Number: None

PATIENT
  Sex: Female
  Weight: 152.8622 kg

DRUGS (2)
  1. SULAR [Suspect]
     Indication: HYPERTENSION
     Dosage: 10 MG ONCE A DAY BY MOUTH
     Route: 048
     Dates: start: 20060816, end: 20060822
  2. FELODIPINE [Suspect]
     Indication: HYPERTENSION
     Dosage: 10 MG - 1/2 TAB ONCE A DAY BY MOUTH
     Route: 048
     Dates: start: 20060822, end: 20060913

REACTIONS (5)
  - DRUG HYPERSENSITIVITY [None]
  - FATIGUE [None]
  - NAUSEA [None]
  - OEDEMA PERIPHERAL [None]
  - RASH [None]
